FAERS Safety Report 5819811-0 (Version None)
Quarter: 2008Q3

REPORT INFORMATION
  Report Type: 
  Country: None (occurrence: None)
  Receive Date: 20080717
  Receipt Date: 20080703
  Transmission Date: 20090109
  Serious: No
  Sender: FDA-Public Use
  Company Number: US024037

PATIENT
  Sex: Female

DRUGS (11)
  1. FENTORA [Suspect]
     Indication: BREAKTHROUGH PAIN
     Dosage: 400 UG TID BUCCAL
     Route: 002
     Dates: start: 20070601, end: 20080630
  2. FENTORA [Suspect]
     Indication: COMPLEX REGIONAL PAIN SYNDROME
     Dosage: 400 UG TID BUCCAL
     Route: 002
     Dates: start: 20070601, end: 20080630
  3. METHADONE HCL [Concomitant]
  4. CLONAZEPAM [Concomitant]
  5. BACLOFEN [Concomitant]
  6. DOXYCYCLINE HCL [Concomitant]
  7. ROCEPHIN [Concomitant]
  8. PHENERGAN HCL [Concomitant]
  9. COMPAZINE /00013302/ [Concomitant]
  10. DEPAKOTE [Concomitant]
  11. BENADRYL [Concomitant]

REACTIONS (8)
  - CIRCUMSTANCE OR INFORMATION CAPABLE OF LEADING TO MEDICATION ERROR [None]
  - COLD SWEAT [None]
  - DRUG INEFFECTIVE [None]
  - HEADACHE [None]
  - HYPERHIDROSIS [None]
  - NAUSEA [None]
  - PAIN [None]
  - PHARMACEUTICAL PRODUCT COMPLAINT [None]
